FAERS Safety Report 16276543 (Version 1)
Quarter: 2019Q2

REPORT INFORMATION
  Report Type: Report from Study
  Country: CO (occurrence: CO)
  Receive Date: 20190506
  Receipt Date: 20190506
  Transmission Date: 20190711
  Serious: Yes (Hospitalization)
  Sender: FDA-Public Use
  Company Number: CO-ASTELLAS-2019US019483

PATIENT
  Age: 69 Year
  Sex: Male
  Weight: 62 kg

DRUGS (5)
  1. MYCOPHENOLATE [Concomitant]
     Active Substance: MYCOPHENOLIC ACID
     Indication: RENAL TRANSPLANT
     Dosage: 2 IN THE MORNING AND 1 IN NIGHT
     Route: 048
     Dates: start: 20181211
  2. TRIMETHOPRIM. [Concomitant]
     Active Substance: TRIMETHOPRIM
     Indication: RENAL TRANSPLANT
     Dosage: UNK UNK (MONDAY,WEDNESDAYAND FRIDAY), UNKNOWN FREQ.
     Route: 048
     Dates: start: 20181211
  3. PREDNISOLONE. [Concomitant]
     Active Substance: PREDNISOLONE
     Indication: RENAL TRANSPLANT
     Route: 048
     Dates: start: 20181211
  4. TACROLIMUS. [Suspect]
     Active Substance: TACROLIMUS
     Indication: RENAL TRANSPLANT
     Dosage: 6 MG (1 CAPSULE OF 1 MG AND 1 CAPSULE OF 5 MG), ONCE DAILY
     Route: 048
     Dates: start: 20181211, end: 20190418
  5. TACROLIMUS. [Suspect]
     Active Substance: TACROLIMUS
     Dosage: 3 MG (1 CAPSULE OF 3 MG), ONCE DAILY
     Route: 048
     Dates: start: 20190419

REACTIONS (5)
  - Cytomegalovirus infection [Recovering/Resolving]
  - Movement disorder [Unknown]
  - Seizure [Recovered/Resolved]
  - Diarrhoea [Recovered/Resolved]
  - Drug level increased [Recovering/Resolving]

NARRATIVE: CASE EVENT DATE: 201902
